FAERS Safety Report 10129795 (Version 2)
Quarter: 2014Q2

REPORT INFORMATION
  Report Type: Spontaneous
  Country: FR (occurrence: None)
  Receive Date: 20140424
  Receipt Date: 20140430
  Transmission Date: 20141212
  Serious: Yes (Hospitalization)
  Sender: FDA-Public Use
  Company Number: NL01PV14.35821

PATIENT
  Age: 35 Year
  Sex: Female

DRUGS (5)
  1. DIVARIUS [Suspect]
     Indication: DEPRESSION
     Route: 048
     Dates: start: 20130906, end: 20131218
  2. MIRENA [Suspect]
     Indication: CONTRACEPTION
     Dosage: (INTRAUTERINE)
     Route: 067
     Dates: start: 201310, end: 20131230
  3. PAROXETINE ARROW [Suspect]
     Indication: DEPRESSION
     Dosage: SINGLE (ONCE)
     Route: 048
     Dates: start: 20131218, end: 20140206
  4. LEVOCETIRIZINE DIHYDROCHLORIDE [Suspect]
     Indication: RHINITIS
     Dosage: 3 MONTHS PER YEAR, AT END OF THE YEAR
     Route: 048
     Dates: start: 20130906, end: 20131218
  5. TIGREAT (FROVATRIPTAN SUCCINATE MONOHYDRATE) [Concomitant]

REACTIONS (2)
  - Thrombotic thrombocytopenic purpura [None]
  - Microangiopathic haemolytic anaemia [None]
